FAERS Safety Report 9433623 (Version 1)
Quarter: 2013Q3

REPORT INFORMATION
  Report Type: Spontaneous
  Country: GB (occurrence: GB)
  Receive Date: 20130731
  Receipt Date: 20130731
  Transmission Date: 20140515
  Serious: Yes (Other)
  Sender: FDA-Public Use
  Company Number: GB-WATSON-2013-13452

PATIENT
  Age: 77 Year
  Sex: Female

DRUGS (3)
  1. TIMOLOL (UNKNOWN) [Suspect]
     Indication: PRODUCT USED FOR UNKNOWN INDICATION
     Dosage: 0.25 %
     Route: 047
  2. BISOPROLOL (UNKNOWN) [Suspect]
     Indication: HYPERTENSION
     Route: 048
  3. LOSARTAN POTASSIUM (UNKNOWN) [Suspect]
     Indication: HYPERTENSION
     Route: 048

REACTIONS (4)
  - Asthenia [Unknown]
  - Dizziness [Unknown]
  - Headache [Unknown]
  - Drug interaction [Unknown]
